FAERS Safety Report 4411689-5 (Version None)
Quarter: 2004Q3

REPORT INFORMATION
  Report Type: 
  Country: None (occurrence: None)
  Receive Date: 20040729
  Receipt Date: 20040729
  Transmission Date: 20050211
  Serious: Yes (Disabling, Congenital Anomaly)
  Sender: FDA-Public Use
  Company Number: None

PATIENT
  Age: 4 Month
  Sex: Male
  Weight: 8.6183 kg

DRUGS (3)
  1. ZYPREXA [Suspect]
     Indication: BIPOLAR DISORDER
     Dosage: 20 MG PER DAY ORAL
     Route: 048
     Dates: start: 20030101, end: 20030901
  2. ZOLOFT [Suspect]
     Indication: BIPOLAR DISORDER
     Dosage: 50 MG TWICE A DAY ORAL
     Route: 048
     Dates: start: 20030101, end: 20030901
  3. ZOLOFT [Suspect]
     Indication: DEPRESSION
     Dosage: 50 MG TWICE A DAY ORAL
     Route: 048
     Dates: start: 20030101, end: 20030901

REACTIONS (4)
  - DRUG EXPOSURE DURING PREGNANCY [None]
  - NYSTAGMUS [None]
  - OPTIC NERVE HYPOPLASIA [None]
  - VISUAL ACUITY REDUCED [None]
